FAERS Safety Report 11812602 (Version 1)
Quarter: 2015Q4

REPORT INFORMATION
  Report Type: Spontaneous
  Country: FR (occurrence: FR)
  Receive Date: 20151208
  Receipt Date: 20151208
  Transmission Date: 20160305
  Serious: Yes (Other)
  Sender: FDA-Public Use
  Company Number: FR-MYLANLABS-2015M1043568

PATIENT

DRUGS (2)
  1. FONDAPARINUX [Suspect]
     Active Substance: FONDAPARINUX
     Indication: OFF LABEL USE
  2. FONDAPARINUX [Suspect]
     Active Substance: FONDAPARINUX
     Indication: PHLEBITIS
     Dosage: 2.5 MG, QD
     Dates: start: 20121210

REACTIONS (4)
  - Gamma-glutamyltransferase increased [Unknown]
  - Transaminases increased [Unknown]
  - Hepatitis toxic [Unknown]
  - Off label use [Unknown]
